FAERS Safety Report 9548382 (Version 1)
Quarter: 2013Q2

REPORT INFORMATION
  Report Type: Spontaneous
  Country: US (occurrence: None)
  Receive Date: 20130627
  Receipt Date: 20130627
  Transmission Date: 20140414
  Serious: Yes (Other)
  Sender: FDA-Public Use
  Company Number: 1000044913

PATIENT
  Age: 82 Year
  Sex: Male

DRUGS (3)
  1. LINZESS [Suspect]
     Indication: CONSTIPATION
     Dosage: 145 MCG (145 MCG, 1 IN 1 D), ORAL
     Route: 048
     Dates: start: 201304, end: 201304
  2. LIPITOR (ATORVASTAIN CALCIUM) (ATORVASTATIN CALCIUM)? [Concomitant]
  3. DULCOLAX (DOCUSATE) (DOCUSATE) [Concomitant]

REACTIONS (5)
  - Cough [None]
  - Dizziness [None]
  - Diarrhoea [None]
  - Dyspnoea [None]
  - Blood pressure decreased [None]
